FAERS Safety Report 13078892 (Version 2)
Quarter: 2017Q1

REPORT INFORMATION
  Report Type: Spontaneous
  Country: US (occurrence: US)
  Receive Date: 20170102
  Receipt Date: 20170215
  Transmission Date: 20170428
  Serious: No
  Sender: FDA-Public Use
  Company Number: US-ASTRAZENECA-2016SF36200

PATIENT
  Age: 85 Year
  Sex: Female
  Weight: 49.9 kg

DRUGS (2)
  1. SYMBICORT [Suspect]
     Active Substance: BUDESONIDE\FORMOTEROL FUMARATE DIHYDRATE
     Indication: BRONCHIECTASIS
     Dosage: 160/4.5MCG TWO PUFFS, TWO TIMES A DAY
     Route: 055
     Dates: start: 20161122
  2. VENTOLIN [Concomitant]
     Active Substance: ALBUTEROL SULFATE
     Dosage: AS REQUIRED
     Route: 055

REACTIONS (7)
  - Product use issue [Unknown]
  - Fatigue [Unknown]
  - Off label use [Unknown]
  - Incorrect product storage [Unknown]
  - Device malfunction [Unknown]
  - Drug dose omission [Unknown]
  - Device use error [Unknown]

NARRATIVE: CASE EVENT DATE: 2016
